FAERS Safety Report 24714618 (Version 1)
Quarter: 2024Q4

REPORT INFORMATION
  Report Type: Spontaneous
  Country: FR (occurrence: FR)
  Receive Date: 20241209
  Receipt Date: 20241209
  Transmission Date: 20250114
  Serious: Yes (Life-Threatening, Hospitalization, Other)
  Sender: COLLEGIUM PHARMACEUTICAL
  Company Number: FR-AFSSAPS-LL2024002133

PATIENT
  Sex: Male

DRUGS (1)
  1. SYMPROIC [Suspect]
     Active Substance: NALDEMEDINE
     Indication: Constipation
     Dosage: 200 MICROGRAM, UNKNOWN
     Route: 065
     Dates: start: 20240601, end: 20241108

REACTIONS (1)
  - Peptic ulcer perforation [Not Recovered/Not Resolved]

NARRATIVE: CASE EVENT DATE: 20241109
